FAERS Safety Report 20808456 (Version 2)
Quarter: 2022Q2

REPORT INFORMATION
  Report Type: Spontaneous
  Country: NP (occurrence: NP)
  Receive Date: 20220510
  Receipt Date: 20220526
  Transmission Date: 20220721
  Serious: Yes (Hospitalization, Other)
  Sender: FDA-Public Use
  Company Number: NP-MACLEODS PHARMACEUTICALS US LTD-MAC2022035494

PATIENT

DRUGS (1)
  1. CLOBETASOL [Suspect]
     Active Substance: CLOBETASOL
     Indication: Acarodermatitis
     Dosage: UNK, STARTED IN JULY-AUGUST 2020
     Route: 061

REACTIONS (2)
  - Cushing^s syndrome [Recovered/Resolved]
  - Intentional product misuse to child [Recovered/Resolved]
